FAERS Safety Report 4690657-2 (Version None)
Quarter: 2005Q2

REPORT INFORMATION
  Report Type: 
  Country: None (occurrence: None)
  Receive Date: 20050615
  Receipt Date: 20050602
  Transmission Date: 20051028
  Serious: Yes (Hospitalization)
  Sender: FDA-Public Use
  Company Number: FR-GLAXOSMITHKLINE-B0383785A

PATIENT
  Age: 58 Year
  Sex: Female
  Weight: 92 kg

DRUGS (3)
  1. ONDANSETRON [Suspect]
     Indication: PREMEDICATION
     Dosage: 8MG CYCLIC
     Route: 042
     Dates: start: 20050524
  2. ELOXATIN [Suspect]
     Indication: COLORECTAL CANCER
     Route: 042
     Dates: start: 20050524
  3. SOLU-MEDROL [Concomitant]
     Indication: PREMEDICATION
     Dosage: 120MG CYCLIC
     Route: 042
     Dates: start: 20050524

REACTIONS (4)
  - HOT FLUSH [None]
  - HYPERHIDROSIS [None]
  - HYPERTENSIVE CRISIS [None]
  - PRURITUS GENERALISED [None]
